FAERS Safety Report 9800953 (Version 2)
Quarter: 2014Q1

REPORT INFORMATION
  Report Type: Report from Study
  Country: US (occurrence: US)
  Receive Date: 20140107
  Receipt Date: 20140107
  Transmission Date: 20141002
  Serious: Yes (Hospitalization)
  Sender: FDA-Public Use
  Company Number: US-BRISTOL-MYERS SQUIBB COMPANY-19888932

PATIENT
  Age: 88 Year
  Sex: Male
  Weight: 67.12 kg

DRUGS (24)
  1. CARBOPLATIN [Suspect]
     Indication: NON-SMALL CELL LUNG CANCER
     Dosage: 1DF- AUC 6?LAST DOSE:08NOV13
     Route: 042
     Dates: start: 20130927
  2. PACLITAXEL [Suspect]
     Indication: NON-SMALL CELL LUNG CANCER
     Dosage: LAST DOSE:08NOV13
     Route: 042
     Dates: start: 20130927
  3. NECITUMUMAB [Suspect]
     Indication: NON-SMALL CELL LUNG CANCER
     Route: 042
     Dates: start: 20130927, end: 20131108
  4. ALBUTEROL [Concomitant]
     Dosage: INHAL
     Route: 055
     Dates: start: 20130815
  5. COLCRYS [Concomitant]
     Dates: start: 2011
  6. HYDROXYCHLOROQUINE [Concomitant]
     Dates: start: 2003
  7. METOPROLOL [Concomitant]
     Dates: start: 20131019
  8. CRESTOR [Concomitant]
     Dates: start: 20100922
  9. VITAMIN B12 [Concomitant]
     Dates: start: 20100922
  10. COD LIVER OIL [Concomitant]
  11. LEVOFLOXACIN [Concomitant]
     Dates: start: 20131115
  12. HYDROCODONE [Concomitant]
     Dates: start: 20130815
  13. PREDNISONE [Concomitant]
     Dates: start: 20130815
  14. SPIRIVA [Concomitant]
     Dosage: INHALER
     Route: 055
     Dates: start: 20130815
  15. OXYGEN [Concomitant]
     Dates: start: 201307
  16. NEULASTA [Concomitant]
     Dates: start: 20130930
  17. CALCIUM [Concomitant]
     Dates: start: 20131018
  18. VITAMIN D [Concomitant]
     Dates: start: 20131018
  19. LACTULOSE [Concomitant]
     Dates: start: 20131018
  20. DENOSUMAB [Concomitant]
     Dates: start: 20130927
  21. ALLOPURINOL [Concomitant]
     Dates: start: 2011
  22. AMITRIPTYLINE [Concomitant]
     Dates: start: 2009
  23. GUAIFENESIN [Concomitant]
     Dates: start: 20130815
  24. LEVOTHYROXINE [Concomitant]
     Dates: start: 1970

REACTIONS (3)
  - Sepsis [Recovered/Resolved]
  - Pneumonia [Unknown]
  - Anaemia [Recovered/Resolved]
